FAERS Safety Report 13226379 (Version 3)
Quarter: 2017Q1

REPORT INFORMATION
  Report Type: Spontaneous
  Country: PL (occurrence: PL)
  Receive Date: 20170213
  Receipt Date: 20170227
  Transmission Date: 20170428
  Serious: Yes (Hospitalization, Other)
  Sender: FDA-Public Use
  Company Number: PL-PFIZER INC-2016546932

PATIENT
  Age: 80 Year
  Sex: Male

DRUGS (8)
  1. CARDURA XL [Suspect]
     Active Substance: DOXAZOSIN MESYLATE
     Dosage: 4 MG, FOR 20 YEARS (SINCE 2006 AND WITH A BREAK IN 2009)
     Dates: start: 2006, end: 2009
  2. SPIRIVA [Concomitant]
     Active Substance: TIOTROPIUM BROMIDE MONOHYDRATE
  3. SERETIDE [Concomitant]
     Active Substance: FLUTICASONE PROPIONATE\SALMETEROL XINAFOATE
  4. SEDAM 3 [Concomitant]
     Indication: SLEEP DISORDER
     Dosage: 1/4TH OF TABLET AT ONCE
  5. LORISTA [Concomitant]
     Active Substance: LOSARTAN POTASSIUM
  6. CARDURA XL [Suspect]
     Active Substance: DOXAZOSIN MESYLATE
     Dosage: 4 MG, FOR 20 YEARS (SINCE 2006 AND WITH A BREAK IN 2009)
     Dates: start: 2009
  7. CONTROLOC [Concomitant]
     Active Substance: PANTOPRAZOLE SODIUM
  8. EUPHYLLIN 300 [Concomitant]

REACTIONS (12)
  - Prostate cancer [Unknown]
  - Cough [Recovered/Resolved]
  - Catarrh [Recovered/Resolved]
  - Hernia [Unknown]
  - Dyspnoea [Unknown]
  - Rhinorrhoea [Unknown]
  - Micturition disorder [Unknown]
  - Gynaecomastia [Not Recovered/Not Resolved]
  - Lung neoplasm malignant [Unknown]
  - Back pain [Unknown]
  - Chronic obstructive pulmonary disease [Unknown]
  - Chest pain [Unknown]
